FAERS Safety Report 9619541 (Version 2)
Quarter: 2013Q4

REPORT INFORMATION
  Report Type: Spontaneous
  Country: LT (occurrence: LT)
  Receive Date: 20131014
  Receipt Date: 20131120
  Transmission Date: 20140711
  Serious: Yes (Other)
  Sender: FDA-Public Use
  Company Number: LT-TEVA-434033ISR

PATIENT
  Age: 56 Year
  Sex: Female

DRUGS (6)
  1. AZILECT [Suspect]
     Indication: PARKINSON^S DISEASE
     Dosage: 1 MILLIGRAM DAILY;
     Route: 048
     Dates: start: 20130907, end: 20130908
  2. AZILECT [Suspect]
     Route: 048
  3. L-DOPA 250MG [Concomitant]
     Indication: PARKINSON^S DISEASE
     Dosage: 500 MILLIGRAM DAILY;
     Route: 048
  4. ROPINIROLE [Concomitant]
     Dosage: 12 MILLIGRAM DAILY;
  5. LEXOTANIL [Concomitant]
  6. MOVALIS [Concomitant]

REACTIONS (5)
  - Abdominal pain [Unknown]
  - Headache [Unknown]
  - Neck pain [Unknown]
  - Bone pain [Unknown]
  - Bone pain [Unknown]
